FAERS Safety Report 7656556-9 (Version None)
Quarter: 2011Q3

REPORT INFORMATION
  Report Type: 
  Country: None (occurrence: None)
  Receive Date: 20110804
  Receipt Date: 20110127
  Transmission Date: 20111222
  Serious: No
  Sender: FDA-Public Use
  Company Number: US-BAUSCH-2011BL000573

PATIENT
  Age: 66 Year
  Sex: Female

DRUGS (3)
  1. CALCIUM CARBONATE [Concomitant]
  2. OPCON-A [Suspect]
     Indication: EYE PRURITUS
     Route: 047
     Dates: start: 20090101, end: 20110101
  3. ACTONEL /USA/ [Concomitant]
     Indication: OSTEOPENIA
     Route: 048

REACTIONS (3)
  - INTRAOCULAR PRESSURE INCREASED [None]
  - VITREOUS DETACHMENT [None]
  - EYE IRRITATION [None]
